FAERS Safety Report 8967320 (Version 1)
Quarter: 2012Q4

REPORT INFORMATION
  Report Type: 
  Country: US (occurrence: US)
  Receive Date: 20121214
  Receipt Date: 20121214
  Transmission Date: 20130627
  Serious: No
  Sender: FDA-Public Use
  Company Number: US-GLAXOSMITHKLINE-A0995115A

PATIENT
  Sex: Male

DRUGS (7)
  1. FLONASE [Suspect]
     Indication: PRODUCT USED FOR UNKNOWN INDICATION
     Route: 045
  2. ADVAIR [Suspect]
     Indication: ASTHMA
     Dosage: 1PUFF Twice per day
     Route: 055
     Dates: start: 20120919, end: 20120923
  3. NASONEX [Suspect]
     Dates: start: 20120919, end: 20120923
  4. SPIRIVA [Suspect]
     Dates: start: 20120919, end: 20120923
  5. TYLENOL [Concomitant]
  6. COAL TAR OINTMENT [Concomitant]
  7. ALBUTEROL [Concomitant]

REACTIONS (5)
  - Epistaxis [Recovered/Resolved]
  - Insomnia [Unknown]
  - Thinking abnormal [Unknown]
  - Decreased appetite [Unknown]
  - Agitation [Unknown]
